FAERS Safety Report 4576987-3 (Version None)
Quarter: 2005Q1

REPORT INFORMATION
  Report Type: 
  Country: None (occurrence: None)
  Receive Date: 20050210
  Receipt Date: 20041211
  Transmission Date: 20050727
  Serious: Yes (Hospitalization, Other)
  Sender: FDA-Public Use
  Company Number: US-AMGEN-KDL106910

PATIENT
  Sex: Male

DRUGS (3)
  1. ENBREL [Suspect]
     Indication: RHEUMATOID ARTHRITIS
     Route: 058
     Dates: start: 20021205, end: 20040301
  2. IMURAN [Concomitant]
  3. PRILOSEC [Concomitant]

REACTIONS (6)
  - BENIGN GASTROINTESTINAL NEOPLASM [None]
  - CONDITION AGGRAVATED [None]
  - CORONARY ARTERY DISEASE [None]
  - DYSPNOEA [None]
  - LOWER RESPIRATORY TRACT INFECTION [None]
  - RHEUMATOID ARTHRITIS [None]
